FAERS Safety Report 8034016-3 (Version None)
Quarter: 2011Q4

REPORT INFORMATION
  Report Type: 
  Country: None (occurrence: None)
  Receive Date: 20111202
  Receipt Date: 20100121
  Transmission Date: 20120403
  Serious: Yes (Hospitalization, Other)
  Sender: FDA-Public Use
  Company Number: 2010SP004567

PATIENT
  Age: 30 Year
  Sex: Female
  Weight: 56.6996 kg

DRUGS (3)
  1. NUVARING [Suspect]
     Indication: CONTRACEPTION
     Dates: start: 20070907, end: 20080801
  2. NUVARING [Suspect]
     Indication: PRODUCT USED FOR UNKNOWN INDICATION
     Dates: start: 20070907, end: 20080801
  3. CLARITIN-D [Concomitant]

REACTIONS (12)
  - DEPRESSION [None]
  - PAPILLOMA VIRAL INFECTION [None]
  - IRRITABILITY [None]
  - TRANSIENT ISCHAEMIC ATTACK [None]
  - PHARYNGITIS STREPTOCOCCAL [None]
  - AORTIC VALVE INCOMPETENCE [None]
  - MIGRAINE [None]
  - BREAST SWELLING [None]
  - BREAST PAIN [None]
  - ISCHAEMIC CEREBRAL INFARCTION [None]
  - MENTAL DISORDER [None]
  - EMOTIONAL DISORDER [None]
